FAERS Safety Report 10262438 (Version 1)
Quarter: 2014Q2

REPORT INFORMATION
  Report Type: Spontaneous
  Country: SE (occurrence: SE)
  Receive Date: 20140626
  Receipt Date: 20140626
  Transmission Date: 20141212
  Serious: Yes (Other)
  Sender: FDA-Public Use
  Company Number: SE-BAYER-2014-090885

PATIENT
  Age: 89 Year
  Sex: Female

DRUGS (1)
  1. CIPROXIN [Suspect]
     Indication: WOUND NECROSIS
     Dosage: UNK

REACTIONS (1)
  - Immune thrombocytopenic purpura [Unknown]
